FAERS Safety Report 20745444 (Version 2)
Quarter: 2022Q2

REPORT INFORMATION
  Report Type: Other
  Country: US (occurrence: None)
  Receive Date: 20220425
  Receipt Date: 20220428
  Transmission Date: 20220721
  Serious: Yes (Other)
  Sender: FDA-Public Use
  Company Number: US-ROCHE-3079294

PATIENT
  Sex: Male
  Weight: 86.714 kg

DRUGS (25)
  1. TECENTRIQ [Suspect]
     Active Substance: ATEZOLIZUMAB
     Indication: Malignant neoplasm of unknown primary site
     Dosage: 1200 MG/20 ML IV SOLUTION.
     Route: 041
  2. ASPIRIN [Concomitant]
     Active Substance: ASPIRIN
     Route: 048
  3. BUPROPION [Concomitant]
     Active Substance: BUPROPION
     Route: 048
  4. ZYRTEC [Concomitant]
     Active Substance: CETIRIZINE HYDROCHLORIDE
     Route: 048
  5. CHOLECALCIFEROL [Concomitant]
     Active Substance: CHOLECALCIFEROL
  6. LISINOPRIL [Concomitant]
     Active Substance: LISINOPRIL
  7. T/GEL (UNITED STATES) [Concomitant]
  8. NICOTINE [Concomitant]
     Active Substance: NICOTINE
  9. OXYCODONE [Concomitant]
     Active Substance: OXYCODONE
     Route: 048
  10. CRESTOR [Concomitant]
     Active Substance: ROSUVASTATIN CALCIUM
     Route: 048
  11. ULTRAM [Concomitant]
     Active Substance: TRAMADOL HYDROCHLORIDE
     Route: 048
  12. CARBOPLATIN [Concomitant]
     Active Substance: CARBOPLATIN
     Route: 042
  13. DECADRON [Concomitant]
     Active Substance: DEXAMETHASONE
  14. BENADRYL [Concomitant]
     Active Substance: DIPHENHYDRAMINE HYDROCHLORIDE
  15. EPINEPHRINE [Concomitant]
     Active Substance: EPINEPHRINE
     Dosage: 1 MG/ML
  16. ETOPOSIDE [Concomitant]
     Active Substance: ETOPOSIDE
     Route: 042
  17. PEPCID [Concomitant]
     Active Substance: FAMOTIDINE
  18. FOSAPREPITANT DIMEGLUMINE [Concomitant]
     Active Substance: FOSAPREPITANT DIMEGLUMINE
  19. SOLU-MEDROL [Concomitant]
     Active Substance: METHYLPREDNISOLONE SODIUM SUCCINATE
  20. ALOXI [Concomitant]
     Active Substance: PALONOSETRON HYDROCHLORIDE
  21. OMNIPAQUE [Concomitant]
     Active Substance: IOHEXOL
     Dates: start: 20210716
  22. OMNIPAQUE [Concomitant]
     Active Substance: IOHEXOL
     Dates: start: 20220325
  23. CELESTONE SOLUSPAN [Concomitant]
     Active Substance: BETAMETHASONE ACETATE\BETAMETHASONE SODIUM PHOSPHATE
     Dates: start: 20110804
  24. TETANUS AND DIPHTHERIA TOXOIDS ADSORBED (VACCINE) [Concomitant]
     Active Substance: CLOSTRIDIUM TETANI\CLOSTRIDIUM TETANI TOXOID ANTIGEN (FORMALDEHYDE INACTIVATED)\CORYNEBACTERIUM DIPH
     Dates: start: 20160517
  25. SHINGRIX [Concomitant]
     Active Substance: RECOMBINANT VARICELLA ZOSTER VIRUS (VZV) GLYCOPROTEIN E
     Dosage: DATE OF VACCINE: 18/NOV/2020
     Dates: start: 20210318

REACTIONS (16)
  - Intracranial aneurysm [Unknown]
  - Rectal haemorrhage [Unknown]
  - Stag horn calculus [Unknown]
  - Anaemia [Unknown]
  - Essential hypertension [Unknown]
  - Diverticulum [Unknown]
  - Irritable bowel syndrome [Unknown]
  - Chest pain [Unknown]
  - Haematuria [Unknown]
  - Periodic limb movement disorder [Unknown]
  - Hypermetropia [Unknown]
  - Retinal drusen [Unknown]
  - Sacroiliitis [Unknown]
  - Colitis [Unknown]
  - Abdominal pain lower [Unknown]
  - Constipation [Unknown]
